FAERS Safety Report 23398151 (Version 1)
Quarter: 2024Q1

REPORT INFORMATION
  Report Type: Spontaneous
  Country: US (occurrence: US)
  Receive Date: 20240112
  Receipt Date: 20240112
  Transmission Date: 20240410
  Serious: Yes (Other)
  Sender: FDA-Public Use
  Company Number: US-INCYTE CORPORATION-2024IN000182

PATIENT

DRUGS (1)
  1. JAKAFI [Suspect]
     Active Substance: RUXOLITINIB
     Indication: Chronic graft versus host disease
     Dosage: TAKE 1/2 (5MG) TABLET ONCE DAILY
     Route: 048
     Dates: start: 20230308

REACTIONS (2)
  - Chronic kidney disease [Unknown]
  - Wrong technique in product usage process [Unknown]
